FAERS Safety Report 20312461 (Version 1)
Quarter: 2022Q1

REPORT INFORMATION
  Report Type: Spontaneous
  Country: US (occurrence: None)
  Receive Date: 20220107
  Receipt Date: 20220107
  Transmission Date: 20220423
  Serious: Yes (Other)
  Sender: FDA-Public Use
  Company Number: None

PATIENT
  Age: 34 Year
  Sex: Male

DRUGS (2)
  1. TACROLIMUS [Suspect]
     Active Substance: TACROLIMUS
     Indication: Bone marrow transplant
     Dosage: FREQUENCY : TWICE A DAY;?
     Route: 048
  2. VALACYCLOVIR [Concomitant]

REACTIONS (2)
  - Tremor [None]
  - Headache [None]

NARRATIVE: CASE EVENT DATE: 20211107
